FAERS Safety Report 8230339-3 (Version None)
Quarter: 2012Q1

REPORT INFORMATION
  Report Type: 
  Country: None (occurrence: None)
  Receive Date: 20120322
  Receipt Date: 20120322
  Transmission Date: 20120608
  Serious: No
  Sender: FDA-Public Use
  Company Number: None

PATIENT
  Sex: Female
  Weight: 69.4003 kg

DRUGS (3)
  1. CALCIUM CARBONATE [Concomitant]
  2. FOSAMAX [Suspect]
     Indication: OSTEOPENIA
     Dosage: 70MG WEEKLY ORAL
     Route: 048
     Dates: start: 20110311, end: 20110511
  3. VITAMIN D [Concomitant]

REACTIONS (3)
  - ABDOMINAL DISTENSION [None]
  - ABDOMINAL PAIN [None]
  - ABDOMINAL DISCOMFORT [None]
